FAERS Safety Report 5005899-6 (Version None)
Quarter: 2006Q2

REPORT INFORMATION
  Report Type: 
  Country: None (occurrence: None)
  Receive Date: 20060517
  Receipt Date: 20060517
  Transmission Date: 20061013
  Serious: Yes (Hospitalization)
  Sender: FDA-Public Use
  Company Number: None

PATIENT
  Age: 76 Year
  Sex: Male

DRUGS (4)
  1. METFORMIN [Suspect]
     Indication: DIABETES MELLITUS NON-INSULIN-DEPENDENT
     Dosage: 850 MG BID
     Dates: start: 20030901
  2. INSULIN INSULATARD NPH NORDISK [Concomitant]
  3. LISINOPRIL [Concomitant]
  4. ROSIGLITAZONE [Concomitant]

REACTIONS (1)
  - HYPOGLYCAEMIA [None]
